FAERS Safety Report 9542231 (Version 4)
Quarter: 2014Q2

REPORT INFORMATION
  Report Type: Spontaneous
  Country: US (occurrence: None)
  Receive Date: 20130918
  Receipt Date: 20140516
  Transmission Date: 20141212
  Serious: No
  Sender: FDA-Public Use
  Company Number: 2013CT000062

PATIENT
  Age: 46 Year
  Sex: Female
  Weight: 122.47 kg

DRUGS (3)
  1. KORLYM [Suspect]
     Indication: CUSHING^S SYNDROME
     Route: 048
     Dates: start: 201303
  2. SPIRONOLACTONE [Concomitant]
  3. KETOCONAZOLE [Concomitant]

REACTIONS (14)
  - Pollakiuria [None]
  - Chromaturia [None]
  - Vaginal haemorrhage [None]
  - Hyperhidrosis [None]
  - Polydipsia [None]
  - Drug effect decreased [None]
  - Endometrial hypertrophy [None]
  - Weight decreased [None]
  - Therapeutic response changed [None]
  - Pollakiuria [None]
  - Chromaturia [None]
  - Device ineffective [None]
  - Anxiety [None]
  - Drug dose omission [None]
